FAERS Safety Report 22945736 (Version 2)
Quarter: 2025Q3

REPORT INFORMATION
  Report Type: Report from Study
  Country: EU (occurrence: EU)
  Receive Date: 20230914
  Receipt Date: 20250915
  Transmission Date: 20251020
  Serious: Yes (Hospitalization, Other)
  Sender: ABBVIE
  Company Number: EU-ABBVIE-5404681

PATIENT
  Age: 43 Year
  Sex: Male
  Weight: 62 kg

DRUGS (26)
  1. HUMIRA [Suspect]
     Active Substance: ADALIMUMAB
     Indication: Colitis ulcerative
     Route: 058
     Dates: start: 201412, end: 20151221
  2. HUMIRA [Suspect]
     Active Substance: ADALIMUMAB
     Route: 058
     Dates: start: 20160111, end: 201805
  3. HUMIRA [Suspect]
     Active Substance: ADALIMUMAB
     Route: 058
     Dates: start: 201805, end: 20180723
  4. HUMIRA [Suspect]
     Active Substance: ADALIMUMAB
     Route: 058
     Dates: start: 20180806, end: 20180827
  5. HUMIRA [Suspect]
     Active Substance: ADALIMUMAB
     Route: 058
     Dates: start: 20180910, end: 20190520
  6. HUMIRA [Suspect]
     Active Substance: ADALIMUMAB
     Route: 058
     Dates: start: 20190603, end: 202305
  7. HUMIRA [Suspect]
     Active Substance: ADALIMUMAB
     Route: 058
     Dates: start: 20230526, end: 20230801
  8. HUMIRA [Suspect]
     Active Substance: ADALIMUMAB
     Route: 058
     Dates: start: 201303, end: 201304
  9. HUMIRA [Suspect]
     Active Substance: ADALIMUMAB
     Route: 058
     Dates: start: 201303, end: 201303
  10. HUMIRA [Suspect]
     Active Substance: ADALIMUMAB
     Route: 058
     Dates: start: 201304, end: 201412
  11. DIPROSONE [Concomitant]
     Active Substance: BETAMETHASONE DIPROPIONATE
     Indication: Eczema
     Dosage: 0.5 MG/G
     Route: 062
     Dates: start: 2016
  12. NADROPARIN CALCIUM [Concomitant]
     Active Substance: NADROPARIN CALCIUM
     Indication: Prophylaxis
     Route: 058
     Dates: start: 20230831
  13. NADROPARIN CALCIUM [Concomitant]
     Active Substance: NADROPARIN CALCIUM
     Indication: Prophylaxis
     Route: 058
     Dates: start: 20230827, end: 20230829
  14. IBUPROFEN [Concomitant]
     Active Substance: IBUPROFEN
     Indication: Pericarditis
     Route: 048
     Dates: start: 20230901
  15. ASPIRIN LYSINE [Concomitant]
     Active Substance: ASPIRIN LYSINE
     Indication: Pericarditis
     Route: 042
     Dates: start: 20230821, end: 20230829
  16. ACETAMINOPHEN [Concomitant]
     Active Substance: ACETAMINOPHEN
     Indication: Pericarditis
     Route: 042
     Dates: start: 20230821, end: 20230902
  17. COLCHICINE [Concomitant]
     Active Substance: COLCHICINE
     Indication: Pericarditis
     Route: 048
     Dates: start: 20230821, end: 20230821
  18. COLCHICINE [Concomitant]
     Active Substance: COLCHICINE
     Indication: Pericarditis
     Route: 048
     Dates: start: 20230822
  19. SOLU-MEDROL [Concomitant]
     Active Substance: METHYLPREDNISOLONE SODIUM SUCCINATE
     Indication: Pericarditis
     Route: 042
     Dates: start: 20230825, end: 20230827
  20. PANTOMED [Concomitant]
     Indication: Prophylaxis
     Route: 048
     Dates: start: 20230826, end: 20230830
  21. PANTOMED [Concomitant]
     Indication: Prophylaxis
     Route: 048
     Dates: start: 20230831
  22. MEDROL [Concomitant]
     Active Substance: METHYLPREDNISOLONE
     Indication: Pericarditis
     Route: 048
     Dates: start: 20230828, end: 20230831
  23. MEDROL [Concomitant]
     Active Substance: METHYLPREDNISOLONE
     Indication: Pericarditis
     Route: 048
     Dates: start: 20230901, end: 20230903
  24. MEDROL [Concomitant]
     Active Substance: METHYLPREDNISOLONE
     Indication: Pericarditis
     Route: 048
     Dates: start: 20230904, end: 20230906
  25. DAFALGAN [Concomitant]
     Active Substance: ACETAMINOPHEN
     Indication: Pericarditis
     Route: 048
     Dates: start: 20230903, end: 20230905
  26. TRAMADOL HYDROCHLORIDE [Concomitant]
     Active Substance: TRAMADOL HYDROCHLORIDE
     Indication: Pericarditis
     Route: 048
     Dates: start: 20230901, end: 20230902

REACTIONS (1)
  - Pericardial effusion [Recovered/Resolved]

NARRATIVE: CASE EVENT DATE: 20230907
